FAERS Safety Report 7477928-1 (Version None)
Quarter: 2011Q2

REPORT INFORMATION
  Report Type: 
  Country: None (occurrence: None)
  Receive Date: 20110513
  Receipt Date: 20110506
  Transmission Date: 20111010
  Serious: Yes (Other)
  Sender: FDA-Public Use
  Company Number: US-AMGEN-USASP2011023854

PATIENT
  Age: 72 Year
  Sex: Female

DRUGS (4)
  1. CORTICOSTEROIDS [Concomitant]
  2. WINRHO [Concomitant]
     Dosage: UNK
     Dates: start: 20100718
  3. NPLATE [Suspect]
     Indication: IDIOPATHIC THROMBOCYTOPENIC PURPURA
     Dosage: 8 A?G/KG, UNK
     Dates: start: 20100706, end: 20110331
  4. RITUXAN [Concomitant]

REACTIONS (3)
  - THROMBOCYTOPENIA [None]
  - THERAPEUTIC RESPONSE DECREASED [None]
  - PLATELET COUNT DECREASED [None]
